FAERS Safety Report 5140339-8 (Version None)
Quarter: 2006Q4

REPORT INFORMATION
  Report Type: 
  Country: None (occurrence: None)
  Receive Date: 20061031
  Receipt Date: 20061018
  Transmission Date: 20070319
  Serious: Yes (Hospitalization)
  Sender: FDA-Public Use
  Company Number: FR-ELI_LILLY_AND_COMPANY-FR200610003531

PATIENT
  Age: 69 Year
  Sex: Female

DRUGS (5)
  1. FORSTEO [Suspect]
     Indication: OSTEOPOROSIS
     Dosage: 20 UG, DAILY (1/D)
     Route: 058
     Dates: start: 20050923
  2. CORTANCYL [Concomitant]
     Indication: RHEUMATOID ARTHRITIS
     Dosage: 13 MG, DAILY (1/D)
     Dates: start: 19920101
  3. METHOTREXATE [Concomitant]
     Indication: RHEUMATOID ARTHRITIS
     Dosage: 6 D/F, WEEKLY (1/W)
     Dates: start: 19920101
  4. CALCIDOSE [Concomitant]
     Indication: OSTEOPOROSIS
     Dosage: 2 D/F, DAILY (1/D)
  5. DIFFU K [Concomitant]
     Indication: HYPOKALAEMIA
     Dosage: 3 D/F, DAILY (1/D)

REACTIONS (8)
  - BLINDNESS [None]
  - COAGULOPATHY [None]
  - ERYTHEMA [None]
  - FALL [None]
  - HAEMOPTYSIS [None]
  - HEADACHE [None]
  - LOWER LIMB FRACTURE [None]
  - THROMBOSIS [None]
